FAERS Safety Report 9829816 (Version 2)
Quarter: 2014Q1

REPORT INFORMATION
  Report Type: Report from Study
  Country: US (occurrence: US)
  Receive Date: 20140120
  Receipt Date: 20140129
  Transmission Date: 20141002
  Serious: Yes (Other)
  Sender: FDA-Public Use
  Company Number: US-ROCHE-1334501

PATIENT
  Age: 59 Year
  Sex: Female
  Weight: 63.56 kg

DRUGS (10)
  1. ACTEMRA [Suspect]
     Indication: RHEUMATOID ARTHRITIS
     Route: 058
     Dates: start: 20131230
  2. ACTEMRA [Suspect]
     Route: 058
     Dates: start: 20140113
  3. BENADRYL (UNITED STATES) [Concomitant]
  4. GRALISE [Concomitant]
     Route: 065
  5. FLEXERIL (UNITED STATES) [Concomitant]
  6. AMBIEN [Concomitant]
     Dosage: PRN
     Route: 065
  7. TYLENOL [Concomitant]
  8. PREDNISONE [Concomitant]
     Route: 065
  9. FOLIC ACID [Concomitant]
     Route: 065
  10. OMEPRAZOLE [Concomitant]
     Route: 065

REACTIONS (5)
  - Urethral haemorrhage [Not Recovered/Not Resolved]
  - Blood urine present [Not Recovered/Not Resolved]
  - Skin exfoliation [Not Recovered/Not Resolved]
  - Headache [Not Recovered/Not Resolved]
  - Dysuria [Not Recovered/Not Resolved]
